FAERS Safety Report 6562023-6 (Version None)
Quarter: 2010Q1

REPORT INFORMATION
  Report Type: 
  Country: None (occurrence: None)
  Receive Date: 20100130
  Receipt Date: 20091207
  Transmission Date: 20100710
  Serious: No
  Sender: FDA-Public Use
  Company Number: US-ABBOTT-09P-163-0601362-00

PATIENT
  Sex: Female
  Weight: 48.124 kg

DRUGS (7)
  1. HUMIRA [Suspect]
     Indication: CROHN'S DISEASE
     Dosage: DAY 1
     Dates: start: 20091006
  2. HUMIRA [Suspect]
     Dosage: DAY 2
     Dates: start: 20091007
  3. ZOLOFT [Concomitant]
     Indication: DRUG USE FOR UNKNOWN INDICATION
  4. CARDIZEM [Concomitant]
     Indication: DRUG USE FOR UNKNOWN INDICATION
  5. PLAVIX [Concomitant]
     Indication: DRUG USE FOR UNKNOWN INDICATION
  6. ASPIRIN [Concomitant]
     Indication: DRUG USE FOR UNKNOWN INDICATION
     Route: 048
  7. DARVOCET [Concomitant]
     Indication: BACK PAIN

REACTIONS (7)
  - BACK PAIN [None]
  - CHILLS [None]
  - FATIGUE [None]
  - HYPERHIDROSIS [None]
  - INJECTION SITE PAIN [None]
  - NAUSEA [None]
  - SKIN TIGHTNESS [None]
